FAERS Safety Report 5250632-6 (Version None)
Quarter: 2007Q1

REPORT INFORMATION
  Report Type: 
  Country: None (occurrence: None)
  Receive Date: 20070228
  Receipt Date: 20060620
  Transmission Date: 20070707
  Serious: No
  Sender: FDA-Public Use
  Company Number: US-GLAXOSMITHKLINE-A0608380A

PATIENT
  Sex: Female

DRUGS (2)
  1. LAMICTAL [Suspect]
     Indication: BIPOLAR DISORDER
     Dosage: 25MG PER DAY
     Route: 048
     Dates: start: 20060601, end: 20060602
  2. SYNTHROID [Concomitant]
     Indication: HYPOTHYROIDISM
     Dosage: 100MG PER DAY

REACTIONS (2)
  - ORAL MUCOSAL BLISTERING [None]
  - RASH PUSTULAR [None]
